FAERS Safety Report 9617133 (Version 1)
Quarter: 2013Q4

REPORT INFORMATION
  Report Type: Spontaneous
  Country: US (occurrence: US)
  Receive Date: 20131011
  Receipt Date: 20131011
  Transmission Date: 20140711
  Serious: No
  Sender: FDA-Public Use
  Company Number: US-PFIZER INC-2013287994

PATIENT
  Age: 84 Year
  Sex: Female
  Weight: 56.69 kg

DRUGS (2)
  1. ALAVERT D-12 HOUR ALLERGY + SINUS [Suspect]
     Indication: SINUS CONGESTION
     Dosage: 10 MG, DAILY
     Dates: start: 20130928, end: 20131007
  2. ALAVERT D-12 HOUR ALLERGY + SINUS [Suspect]
     Indication: HYPERSENSITIVITY

REACTIONS (1)
  - Drug ineffective [Unknown]
